FAERS Safety Report 13897161 (Version 1)
Quarter: 2017Q3

REPORT INFORMATION
  Report Type: Spontaneous
  Country: GB (occurrence: GB)
  Receive Date: 20170823
  Receipt Date: 20170823
  Transmission Date: 20171127
  Serious: Yes (Other)
  Sender: FDA-Public Use
  Company Number: GB-TEVA-797641ACC

PATIENT
  Age: 54 Year
  Sex: Male
  Weight: 78 kg

DRUGS (4)
  1. MIRTAZAPINE. [Concomitant]
     Active Substance: MIRTAZAPINE
     Dosage: 1 DOSAGE FORMS DAILY; AT BEDTIME.
     Dates: start: 20170717, end: 20170731
  2. AMOXICILLIN. [Concomitant]
     Active Substance: AMOXICILLIN
     Dosage: 3 DOSAGE FORMS DAILY;
     Dates: start: 20170717, end: 20170722
  3. PROPRANOLOL [Concomitant]
     Active Substance: PROPRANOLOL HYDROCHLORIDE
     Dosage: 3 DOSAGE FORMS DAILY;
     Dates: start: 20170802
  4. CITALOPRAM [Suspect]
     Active Substance: CITALOPRAM HYDROBROMIDE
     Dates: start: 20170802

REACTIONS (1)
  - Homicidal ideation [Recovered/Resolved]

NARRATIVE: CASE EVENT DATE: 20170802
